FAERS Safety Report 19472274 (Version 5)
Quarter: 2021Q3

REPORT INFORMATION
  Report Type: Other
  Country: CA (occurrence: CA)
  Receive Date: 20210629
  Receipt Date: 20210922
  Transmission Date: 20211014
  Serious: Yes (Other)
  Sender: FDA-Public Use
  Company Number: CA-ROCHE-2766301

PATIENT
  Sex: Female

DRUGS (2)
  1. OCREVUS [Suspect]
     Active Substance: OCRELIZUMAB
     Indication: RELAPSING-REMITTING MULTIPLE SCLEROSIS
     Dosage: 300 MG AT DAY 0 AND 14, THEN 600 MG EVERY 6 MONTH
     Route: 042
     Dates: start: 20210127
  2. DIMENHYDRINATE. [Concomitant]
     Active Substance: DIMENHYDRINATE

REACTIONS (5)
  - Urinary tract infection [Unknown]
  - Mental impairment [Unknown]
  - Swelling [Not Recovered/Not Resolved]
  - Tooth infection [Not Recovered/Not Resolved]
  - Pain in jaw [Not Recovered/Not Resolved]
